FAERS Safety Report 19779739 (Version 1)
Quarter: 2021Q3

REPORT INFORMATION
  Report Type: Spontaneous
  Country: US (occurrence: US)
  Receive Date: 20210902
  Receipt Date: 20210902
  Transmission Date: 20211014
  Serious: No
  Sender: FDA-Public Use
  Company Number: US-ASTRAZENECA-2021A694348

PATIENT
  Sex: Female
  Weight: 77.1 kg

DRUGS (2)
  1. BYDUREON BCISE [Suspect]
     Active Substance: EXENATIDE
     Indication: TYPE 2 DIABETES MELLITUS
     Route: 058
     Dates: start: 2021
  2. BYDUREON [Concomitant]
     Active Substance: EXENATIDE
     Dosage: UNKNOWN
     Route: 065

REACTIONS (3)
  - Injection site bruising [Unknown]
  - Incorrect dose administered [Not Recovered/Not Resolved]
  - Device delivery system issue [Unknown]
